FAERS Safety Report 22366129 (Version 1)
Quarter: 2023Q2

REPORT INFORMATION
  Report Type: Report from Study
  Country: IT (occurrence: IT)
  Receive Date: 20230525
  Receipt Date: 20230525
  Transmission Date: 20230721
  Serious: Yes (Other)
  Sender: FDA-Public Use
  Company Number: None

PATIENT
  Age: 57 Year
  Sex: Female

DRUGS (2)
  1. OXALIPLATIN [Suspect]
     Active Substance: OXALIPLATIN
     Indication: Colon cancer
     Dosage: DOSAGE: 150 UNIT OF MEASUREMENT: MILLIGRAMS FREQUENCY OF ADMINISTRATION:?CYCLICAL
     Route: 042
     Dates: start: 20221213
  2. CAPECITABINE [Concomitant]
     Active Substance: CAPECITABINE
     Route: 048

REACTIONS (1)
  - Injection site paraesthesia [Recovering/Resolving]

NARRATIVE: CASE EVENT DATE: 20230327
